FAERS Safety Report 12873053 (Version 1)
Quarter: 2016Q4

REPORT INFORMATION
  Report Type: Report from Study
  Country: CA (occurrence: CA)
  Receive Date: 20161021
  Receipt Date: 20161021
  Transmission Date: 20170207
  Serious: Yes (Other)
  Sender: FDA-Public Use
  Company Number: CA-BRISTOL-MYERS SQUIBB COMPANY-BMS-2016-085275

PATIENT
  Age: 38 Year
  Sex: Female

DRUGS (3)
  1. ETOPOSIDE PHOSPHATE [Suspect]
     Active Substance: ETOPOSIDE PHOSPHATE
     Indication: OVARIAN GERM CELL TERATOMA STAGE I
     Dosage: UNK, QCYCLE
     Route: 065
  2. BLEOMYCIN SULFATE [Suspect]
     Active Substance: BLEOMYCIN SULFATE
     Indication: OVARIAN GERM CELL TERATOMA STAGE I
     Dosage: UNK, QCYCLE
     Route: 065
  3. CISPLATIN. [Suspect]
     Active Substance: CISPLATIN
     Indication: OVARIAN GERM CELL TERATOMA STAGE I
     Dosage: UNK, QCYCLE
     Route: 065

REACTIONS (3)
  - Surgery [Unknown]
  - Product use issue [Unknown]
  - Teratoma benign [Unknown]
